FAERS Safety Report 6686447-1 (Version None)
Quarter: 2010Q2

REPORT INFORMATION
  Report Type: 
  Country: None (occurrence: None)
  Receive Date: 20100419
  Receipt Date: 20100408
  Transmission Date: 20101027
  Serious: Yes (Death, Hospitalization)
  Sender: FDA-Public Use
  Company Number: B0648016A

PATIENT
  Sex: Female

DRUGS (1)
  1. ZINACEF [Suspect]
     Indication: PNEUMONIA
     Route: 030
     Dates: start: 20091120

REACTIONS (3)
  - DIARRHOEA [None]
  - GASTROINTESTINAL INFECTION [None]
  - GENERAL PHYSICAL HEALTH DETERIORATION [None]
